FAERS Safety Report 12729834 (Version 1)
Quarter: 2016Q3

REPORT INFORMATION
  Report Type: Spontaneous
  Country: FR (occurrence: FR)
  Receive Date: 20160909
  Receipt Date: 20160909
  Transmission Date: 20161109
  Serious: Yes (Hospitalization)
  Sender: FDA-Public Use
  Company Number: FR-ABBVIE-16P-056-1723697-00

PATIENT
  Age: 35 Year
  Sex: Male

DRUGS (1)
  1. DEPAKINE [Suspect]
     Active Substance: VALPROATE SODIUM
     Indication: PRODUCT USED FOR UNKNOWN INDICATION
     Dosage: HALF TABLET IN MORNING AND 1 TABLET IN THE EVENING
     Route: 048
     Dates: start: 2014

REACTIONS (5)
  - Epilepsy [Unknown]
  - Pallor [Not Recovered/Not Resolved]
  - Tremor [Not Recovered/Not Resolved]
  - Cold sweat [Not Recovered/Not Resolved]
  - Speech disorder [Not Recovered/Not Resolved]

NARRATIVE: CASE EVENT DATE: 2014
